FAERS Safety Report 4946213-1 (Version None)
Quarter: 2006Q1

REPORT INFORMATION
  Report Type: 
  Country: None (occurrence: None)
  Receive Date: 20060201
  Receipt Date: 20051216
  Transmission Date: 20060701
  Serious: No
  Sender: FDA-Public Use
  Company Number: 2005PV005996

PATIENT
  Age: 75 Year
  Sex: Male
  Weight: 71.2147 kg

DRUGS (8)
  1. BYETTA [Suspect]
     Indication: DIABETES MELLITUS NON-INSULIN-DEPENDENT
     Dosage: 5 MCG, QD; SC, 5 MCG, BID; SC
     Route: 058
     Dates: start: 20050701, end: 20051219
  2. BYETTA [Suspect]
     Indication: DIABETES MELLITUS NON-INSULIN-DEPENDENT
     Dosage: 5 MCG, QD; SC, 5 MCG, BID; SC
     Route: 058
     Dates: start: 20051222, end: 20051223
  3. GLUCOTROL [Concomitant]
  4. CLUCOPHAGE ^BRISTOL-MYERS SQUIBB^ [Concomitant]
  5. ZANTAC [Concomitant]
  6. BETAPACE [Concomitant]
  7. LISINOPRIL [Concomitant]
  8. HUMALOG MIX 75/25 [Concomitant]

REACTIONS (11)
  - ABDOMINAL PAIN UPPER [None]
  - ASTHENIA [None]
  - BACK PAIN [None]
  - CHROMATURIA [None]
  - FEELING ABNORMAL [None]
  - FEELING OF DESPAIR [None]
  - FOOD AVERSION [None]
  - GASTROOESOPHAGEAL REFLUX DISEASE [None]
  - NAUSEA [None]
  - VOMITING [None]
  - WEIGHT DECREASED [None]
